FAERS Safety Report 8805983 (Version 1)
Quarter: 2012Q4

REPORT INFORMATION
  Report Type: Spontaneous
  Country: DE (occurrence: None)
  Receive Date: 20120918
  Receipt Date: 20120918
  Transmission Date: 20130627
  Serious: Yes (Other)
  Sender: FDA-Public Use
  Company Number: GER/GER/12/0025850

PATIENT
  Age: 17 Year
  Sex: Female

DRUGS (3)
  1. RAMIPRIL (RAMIPRIL) [Suspect]
     Indication: HYPERTENSION
     Route: 048
     Dates: start: 201202, end: 201203
  2. NOVORAPID (INSULIN ASPART) [Concomitant]
  3. CARBAMAZEPINE (CARBAMAZEPINE) [Concomitant]

REACTIONS (3)
  - Aphthous stomatitis [None]
  - Dysphagia [None]
  - Lip swelling [None]
